FAERS Safety Report 6538622-4 (Version None)
Quarter: 2010Q1

REPORT INFORMATION
  Report Type: 
  Country: None (occurrence: None)
  Receive Date: 20100114
  Receipt Date: 20100114
  Transmission Date: 20100710
  Serious: Yes (Other)
  Sender: FDA-Public Use
  Company Number: None

PATIENT
  Sex: Male
  Weight: 25.855 kg

DRUGS (2)
  1. INTUNIV [Suspect]
     Indication: ATTENTION DEFICIT/HYPERACTIVITY DISORDER
     Dosage: 3 MG MORNING ORAL
     Route: 048
     Dates: start: 20091120, end: 20091229
  2. INTUNIV [Suspect]
     Indication: IMPULSIVE BEHAVIOUR
     Dosage: 3 MG MORNING ORAL
     Route: 048
     Dates: start: 20091120, end: 20091229

REACTIONS (4)
  - AGITATION [None]
  - GRANDIOSITY [None]
  - MANIA [None]
  - SPEECH DISORDER [None]
